FAERS Safety Report 19680118 (Version 1)
Quarter: 2021Q3

REPORT INFORMATION
  Report Type: Spontaneous
  Country: BR (occurrence: BR)
  Receive Date: 20210810
  Receipt Date: 20210810
  Transmission Date: 20211014
  Serious: Yes (Other)
  Sender: FDA-Public Use
  Company Number: BR-PFIZER INC-2021289422

PATIENT
  Age: 13 Year
  Sex: Female

DRUGS (1)
  1. XELJANZ [Suspect]
     Active Substance: TOFACITINIB CITRATE
     Indication: ALOPECIA AREATA
     Dosage: 5 MG, 2X/DAY
     Dates: start: 202006

REACTIONS (7)
  - Lymphadenopathy [Not Recovered/Not Resolved]
  - Headache [Unknown]
  - COVID-19 [Unknown]
  - Off label use [Unknown]
  - Dyspepsia [Unknown]
  - Product use issue [Unknown]
  - Product used for unknown indication [Unknown]

NARRATIVE: CASE EVENT DATE: 202102
